FAERS Safety Report 8255347-8 (Version None)
Quarter: 2012Q1

REPORT INFORMATION
  Report Type: 
  Country: None (occurrence: None)
  Receive Date: 20120330
  Receipt Date: 20120315
  Transmission Date: 20120608
  Serious: Yes (Death, Other)
  Sender: FDA-Public Use
  Company Number: 2012-131

PATIENT
  Age: 53 Year
  Sex: Female

DRUGS (1)
  1. FAZACLO ODT [Suspect]
     Indication: SCHIZOPHRENIA
     Dosage: 450 - 650 MG, QD, ORAL
     Route: 048
     Dates: start: 20070212, end: 20120301

REACTIONS (2)
  - ANKLE FRACTURE [None]
  - FALL [None]
